FAERS Safety Report 16639621 (Version 4)
Quarter: 2019Q4

REPORT INFORMATION
  Report Type: Report from Study
  Country: None (occurrence: NL)
  Receive Date: 20190727
  Receipt Date: 20191215
  Transmission Date: 20200122
  Serious: Yes (Hospitalization, Other)
  Sender: FDA-Public Use
  Company Number: NL-ABBVIE-19S-114-2720668-00

PATIENT
  Age: 55 Year
  Sex: Female
  Weight: 61 kg

DRUGS (16)
  1. DUODOPA [Suspect]
     Active Substance: CARBIDOPA\LEVODOPA
     Dosage: MD: 6.8, CD: 2.1, ED: 1.5?16 HOUR ADMINISTRATION
     Route: 050
     Dates: start: 2019, end: 2019
  2. RIVOTRIL [Concomitant]
     Active Substance: CLONAZEPAM
     Indication: PRODUCT USED FOR UNKNOWN INDICATION
     Route: 065
  3. SINEMET [Concomitant]
     Active Substance: CARBIDOPA\LEVODOPA
     Indication: PRODUCT USED FOR UNKNOWN INDICATION
     Route: 065
  4. DUODOPA [Suspect]
     Active Substance: CARBIDOPA\LEVODOPA
     Dosage: MD: 3.8, CD: 2.0, ED: 1.5 16 HOUR ADMINISTRATION?DOSE DECREASED
     Route: 050
     Dates: start: 2019, end: 2019
  5. DUODOPA [Suspect]
     Active Substance: CARBIDOPA\LEVODOPA
     Dosage: MD: 6.8, CD: 1.9, ED: 1.5?16 HOUR ADMINISTRATION
     Route: 050
     Dates: start: 2019, end: 2019
  6. SUMATRIPTAN. [Concomitant]
     Active Substance: SUMATRIPTAN
     Indication: MIGRAINE
     Dosage: WHEN NEEDED, HARDLY EVER
  7. LACTULOSE. [Concomitant]
     Active Substance: LACTULOSE
     Indication: PRODUCT USED FOR UNKNOWN INDICATION
  8. FOLIC ACID. [Concomitant]
     Active Substance: FOLIC ACID
     Indication: PRODUCT USED FOR UNKNOWN INDICATION
  9. DUODOPA [Suspect]
     Active Substance: CARBIDOPA\LEVODOPA
     Dosage: MD 6,3 CD 1,8 ED 2,0
     Route: 050
     Dates: start: 2019
  10. VITAMIN B12 [Concomitant]
     Active Substance: CYANOCOBALAMIN
     Indication: PRODUCT USED FOR UNKNOWN INDICATION
  11. DUODOPA [Suspect]
     Active Substance: CARBIDOPA\LEVODOPA
     Dosage: CD 1.7 ED 1.0
     Route: 050
     Dates: start: 2019, end: 2019
  12. SIFROL [Concomitant]
     Active Substance: PRAMIPEXOLE
     Indication: PRODUCT USED FOR UNKNOWN INDICATION
  13. ENTACAPONE. [Concomitant]
     Active Substance: ENTACAPONE
     Indication: PRODUCT USED FOR UNKNOWN INDICATION
  14. DUODOPA [Suspect]
     Active Substance: CARBIDOPA\LEVODOPA
     Indication: PARKINSON^S DISEASE
     Dosage: MD: 3.8, CD: 2.2, ED: 1.5 16 HOUR ADMINISTRATION?DOSE DECREASED
     Route: 050
     Dates: start: 20190312, end: 2019
  15. DUODOPA [Suspect]
     Active Substance: CARBIDOPA\LEVODOPA
     Dosage: CD BY 0.1 ML/HR. RECENTLY THIS WAS DECREASED BY 0.2 ML/HR
     Route: 050
     Dates: start: 2019, end: 2019
  16. DUODOPA [Suspect]
     Active Substance: CARBIDOPA\LEVODOPA
     Dosage: CD 1.8 ED 1.3
     Route: 050
     Dates: start: 2019, end: 2019

REACTIONS (37)
  - Dystonia [Recovering/Resolving]
  - Constipation [Not Recovered/Not Resolved]
  - Pain in extremity [Not Recovered/Not Resolved]
  - Musculoskeletal discomfort [Not Recovered/Not Resolved]
  - Urinary tract infection [Not Recovered/Not Resolved]
  - Dyspnoea [Recovering/Resolving]
  - Abnormal dreams [Recovered/Resolved]
  - Muscle spasms [Not Recovered/Not Resolved]
  - Weight decreased [Not Recovered/Not Resolved]
  - Decreased appetite [Not Recovered/Not Resolved]
  - Somnolence [Not Recovered/Not Resolved]
  - On and off phenomenon [Not Recovered/Not Resolved]
  - Musculoskeletal stiffness [Unknown]
  - Sleep disorder [Recovering/Resolving]
  - Drug ineffective [Recovered/Resolved]
  - Abdominal distension [Not Recovered/Not Resolved]
  - Stoma site discharge [Not Recovered/Not Resolved]
  - Feeling abnormal [Not Recovered/Not Resolved]
  - Chills [Not Recovered/Not Resolved]
  - Device issue [Unknown]
  - Polyneuropathy [Not Recovered/Not Resolved]
  - Muscle rigidity [Not Recovered/Not Resolved]
  - Overdose [Recovered/Resolved]
  - Hyperkinesia [Recovering/Resolving]
  - Eye laser surgery [Unknown]
  - Faeces hard [Not Recovered/Not Resolved]
  - Chorea [Not Recovered/Not Resolved]
  - Mobility decreased [Not Recovered/Not Resolved]
  - Dyskinesia [Not Recovered/Not Resolved]
  - Rib fracture [Not Recovered/Not Resolved]
  - Abnormal faeces [Not Recovered/Not Resolved]
  - Respiratory tract infection [Not Recovered/Not Resolved]
  - Therapeutic product effect incomplete [Not Recovered/Not Resolved]
  - Amnesia [Not Recovered/Not Resolved]
  - Hypophagia [Not Recovered/Not Resolved]
  - Dystonia [Recovering/Resolving]
  - Dyspnoea [Recovered/Resolved]

NARRATIVE: CASE EVENT DATE: 2019
